FAERS Safety Report 6488982-8 (Version None)
Quarter: 2009Q4

REPORT INFORMATION
  Report Type: 
  Country: None (occurrence: None)
  Receive Date: 20091210
  Receipt Date: 20090914
  Transmission Date: 20100525
  Serious: No
  Sender: FDA-Public Use
  Company Number: US-AMGEN-KDL364649

PATIENT
  Sex: Female

DRUGS (1)
  1. ENBREL [Suspect]
     Indication: PSORIASIS
     Route: 058
     Dates: start: 20050222

REACTIONS (4)
  - CONTUSION [None]
  - HAEMORRHAGE [None]
  - ROTATOR CUFF SYNDROME [None]
  - URINARY INCONTINENCE [None]
